FAERS Safety Report 8985870 (Version 4)
Quarter: 2013Q2

REPORT INFORMATION
  Report Type: Spontaneous
  Country: US (occurrence: US)
  Receive Date: 20121226
  Receipt Date: 20130503
  Transmission Date: 20140414
  Serious: Yes (Hospitalization, Other)
  Sender: FDA-Public Use
  Company Number: US-PFIZER INC-2012325994

PATIENT
  Age: 51 Year
  Sex: Female
  Weight: 66.67 kg

DRUGS (6)
  1. LYRICA [Suspect]
     Indication: HYPOAESTHESIA
     Dosage: 100 MG, 4X/DAY
  2. LYRICA [Suspect]
     Indication: NERVE INJURY
  3. NEURONTIN [Suspect]
     Dosage: 600 MG, 3X/DAY
  4. LISINOPRIL [Concomitant]
     Indication: BLOOD PRESSURE ABNORMAL
     Dosage: 20 MG, DAILY
  5. OMEPRAZOLE [Concomitant]
     Indication: DYSPEPSIA
     Dosage: UNK
  6. NEXIUM [Concomitant]
     Indication: DYSPEPSIA
     Dosage: UNK

REACTIONS (7)
  - Arthropathy [Unknown]
  - Arthropathy [Unknown]
  - Hypertension [Unknown]
  - Blood cholesterol increased [Unknown]
  - Blood glucose abnormal [Unknown]
  - Arthralgia [Unknown]
  - Blood iron decreased [Unknown]
